FAERS Safety Report 14297937 (Version 2)
Quarter: 2018Q1

REPORT INFORMATION
  Report Type: Spontaneous
  Country: US (occurrence: US)
  Receive Date: 20171218
  Receipt Date: 20180112
  Transmission Date: 20180509
  Serious: Yes (Hospitalization, Other)
  Sender: FDA-Public Use
  Company Number: US-TARO-2017TAR01063

PATIENT
  Age: 70 Year
  Sex: Female
  Weight: 48.73 kg

DRUGS (14)
  1. CARBAMAZEPINE TABLETS USP 200 MG [Suspect]
     Active Substance: CARBAMAZEPINE
     Dosage: 300 MG, 3X/DAY
     Route: 048
     Dates: start: 20171206, end: 20171207
  2. ROSUVASTATIN. [Concomitant]
     Active Substance: ROSUVASTATIN
     Dosage: 10 MG, UNK
  3. SUPER K [Concomitant]
  4. COQ10 [Concomitant]
     Active Substance: UBIDECARENONE
  5. CAL-P [Concomitant]
  6. TURMERIC [Concomitant]
     Active Substance: HERBALS\TURMERIC
  7. UNSPECIFIED EYE DROPS [Concomitant]
     Active Substance: UNSPECIFIED INGREDIENT
  8. VITAMIN D [Concomitant]
     Active Substance: CHOLECALCIFEROL
  9. HYALURONIC ACID [Concomitant]
     Active Substance: HYALURONIC ACID
  10. CALCIUM [Concomitant]
     Active Substance: CALCIUM
  11. CARBAMAZEPINE TABLETS USP 200 MG [Suspect]
     Active Substance: CARBAMAZEPINE
     Indication: TRIGEMINAL NEURALGIA
     Dosage: 200 MG, 3X/DAY
     Route: 048
     Dates: end: 20171205
  12. CARBAMAZEPINE TABLETS USP 200 MG [Suspect]
     Active Substance: CARBAMAZEPINE
     Dosage: 400 MG, 2X/DAY
     Route: 048
     Dates: start: 20171208
  13. VALACYCLOVIR [Concomitant]
     Active Substance: VALACYCLOVIR HYDROCHLORIDE
     Dosage: 1 G, 1X/DAY
  14. MAGNESIUM [Concomitant]
     Active Substance: MAGNESIUM

REACTIONS (3)
  - Seizure [Not Recovered/Not Resolved]
  - Feeling abnormal [Not Recovered/Not Resolved]
  - Ill-defined disorder [Unknown]

NARRATIVE: CASE EVENT DATE: 20171203
